FAERS Safety Report 4876053-3 (Version None)
Quarter: 2005Q4

REPORT INFORMATION
  Report Type: 
  Country: None (occurrence: None)
  Receive Date: 20051206
  Receipt Date: 20051031
  Transmission Date: 20060501
  Serious: Yes (Other)
  Sender: FDA-Public Use
  Company Number: USA0510112295

PATIENT
  Age: 39 Year
  Sex: Female

DRUGS (2)
  1. ZYPREXA [Suspect]
     Dates: start: 20041031, end: 20050430
  2. CYMBALTA [Suspect]
     Indication: DEPRESSION
     Dosage: 60 MG DAY
     Dates: start: 20050301

REACTIONS (5)
  - DIZZINESS [None]
  - MALAISE [None]
  - NIGHTMARE [None]
  - WEIGHT INCREASED [None]
  - WEIGHT LOSS POOR [None]
